FAERS Safety Report 7331392-1 (Version None)
Quarter: 2011Q1

REPORT INFORMATION
  Report Type: 
  Country: None (occurrence: None)
  Receive Date: 20110228
  Receipt Date: 20110228
  Transmission Date: 20110831
  Serious: Yes (Other)
  Sender: FDA-Public Use
  Company Number: None

PATIENT
  Age: 68 Year
  Sex: Male
  Weight: 78.0187 kg

DRUGS (5)
  1. SIMVASTATIN [Suspect]
     Indication: CHOLESTEROSIS
     Dosage: 40MG 1 DAILY
     Dates: start: 20070917, end: 20101206
  2. VALIUM [Concomitant]
  3. MELOXICAM [Concomitant]
  4. CLONIDINE [Concomitant]
  5. TRAMADOL [Concomitant]

REACTIONS (2)
  - PAIN IN EXTREMITY [None]
  - MUSCULOSKELETAL PAIN [None]
